FAERS Safety Report 9696902 (Version 2)
Quarter: 2013Q4

REPORT INFORMATION
  Report Type: Spontaneous
  Country: US (occurrence: US)
  Receive Date: 20131119
  Receipt Date: 20131119
  Transmission Date: 20140711
  Serious: No
  Sender: FDA-Public Use
  Company Number: US-GILEAD-2007-0013892

PATIENT
  Sex: Female
  Weight: 47.63 kg

DRUGS (11)
  1. LETAIRIS [Suspect]
     Indication: PULMONARY ARTERIAL HYPERTENSION
     Route: 048
     Dates: start: 200710
  2. REVATIO [Concomitant]
     Route: 048
  3. CALTRATE [Concomitant]
     Route: 048
  4. LASIX [Concomitant]
     Route: 048
  5. COUMADIN [Concomitant]
     Route: 048
  6. LIPITOR [Concomitant]
     Route: 048
  7. MIACALCIN [Concomitant]
     Route: 058
  8. DIOVAN [Concomitant]
     Route: 048
  9. MECLIZINE [Concomitant]
     Route: 048
  10. TIAZAC [Concomitant]
     Route: 048
  11. DARVON [Concomitant]
     Route: 048

REACTIONS (1)
  - Dyspnoea [Unknown]
